FAERS Safety Report 20016267 (Version 1)
Quarter: 2021Q4

REPORT INFORMATION
  Report Type: Spontaneous
  Country: US (occurrence: None)
  Receive Date: 20211103
  Receipt Date: 20211103
  Transmission Date: 20220303
  Serious: No
  Sender: FDA-Public Use
  Company Number: None

PATIENT
  Age: 31 Year
  Sex: Female
  Weight: 76.5 kg

DRUGS (1)
  1. SUBLOCADE [Suspect]
     Active Substance: BUPRENORPHINE
     Indication: Drug dependence
     Dosage: OTHER FREQUENCY : ONCE A MONTH;?
     Route: 030
     Dates: start: 20210701

REACTIONS (3)
  - Injection site erythema [None]
  - Injection site warmth [None]
  - Injection site infection [None]

NARRATIVE: CASE EVENT DATE: 20211103
